FAERS Safety Report 22253679 (Version 1)
Quarter: 2023Q2

REPORT INFORMATION
  Report Type: Spontaneous
  Country: CA (occurrence: CA)
  Receive Date: 20230426
  Receipt Date: 20230426
  Transmission Date: 20230721
  Serious: Yes (Other)
  Sender: FDA-Public Use
  Company Number: E2B_06100963

PATIENT
  Age: 29 Year
  Sex: Female

DRUGS (15)
  1. MIRTAZAPINE [Suspect]
     Active Substance: MIRTAZAPINE
     Indication: Hyperemesis gravidarum
     Dosage: 15 MILLIGRAM, ONCE A DAY (1 EVERY 1 DAYS)
     Route: 048
  2. ONDANSETRON [Suspect]
     Active Substance: ONDANSETRON
     Indication: Hyperemesis gravidarum
     Dosage: UNK
     Route: 065
  3. GABAPENTIN [Suspect]
     Active Substance: GABAPENTIN
     Indication: Hyperemesis gravidarum
     Dosage: 100 MILLIGRAM, ONCE A DAY (1 EVERY 1 DAYS)
     Route: 048
  4. FUROSEMIDE [Suspect]
     Active Substance: FUROSEMIDE
     Indication: Pulmonary oedema
     Dosage: UNK
     Route: 065
  5. FUROSEMIDE [Suspect]
     Active Substance: FUROSEMIDE
     Indication: Pulmonary hypertension
  6. FUROSEMIDE [Suspect]
     Active Substance: FUROSEMIDE
     Indication: Pulmonary oedema
     Dosage: 10 MILLIGRAM, TWO TIMES A DAY (2 EVERY 1 DAYS)
     Route: 042
  7. FUROSEMIDE [Suspect]
     Active Substance: FUROSEMIDE
     Indication: Pulmonary hypertension
  8. ASPIRIN [Suspect]
     Active Substance: ASPIRIN
     Indication: Prophylaxis
     Dosage: 162 MILLIGRAM, ONCE A DAY (1 EVERY 1 DAYS)
     Route: 048
  9. BETAMETHASONE [Suspect]
     Active Substance: BETAMETHASONE
     Indication: Maternal therapy to enhance foetal lung maturity
     Route: 065
  10. HEPARIN [Suspect]
     Active Substance: HEPARIN SODIUM
     Indication: Thrombosis prophylaxis
     Dosage: 5000 IU INTERNATIONAL UNIT(S), TWO TIMES A DAY (2 EVERY 1 DASY)
     Route: 058
  11. LABETALOL [Suspect]
     Active Substance: LABETALOL\LABETALOL HYDROCHLORIDE
     Indication: Pulmonary hypertension
     Dosage: UNK
     Route: 065
  12. LABETALOL [Suspect]
     Active Substance: LABETALOL\LABETALOL HYDROCHLORIDE
     Indication: Blood pressure management
  13. METOCLOPRAMIDE [Suspect]
     Active Substance: METOCLOPRAMIDE
     Indication: Hyperemesis gravidarum
     Dosage: UNK
     Route: 065
  14. NIFEDIPINE [Suspect]
     Active Substance: NIFEDIPINE
     Indication: Pulmonary hypertension
     Dosage: 30 MILLIGRAM, ONCE A DAY (1 EVERY 1 DAYS)
     Route: 048
  15. NIFEDIPINE [Suspect]
     Active Substance: NIFEDIPINE
     Indication: Blood pressure management
     Dosage: UNK
     Route: 065

REACTIONS (6)
  - Live birth [Recovered/Resolved]
  - Maternal exposure during pregnancy [Recovered/Resolved]
  - Drug ineffective [Recovered/Resolved]
  - Premature delivery [Recovered/Resolved]
  - Product use in unapproved indication [Recovered/Resolved]
  - Therapy non-responder [Recovered/Resolved]
